FAERS Safety Report 21556168 (Version 1)
Quarter: 2022Q4

REPORT INFORMATION
  Report Type: Spontaneous
  Country: GB (occurrence: GB)
  Receive Date: 20221104
  Receipt Date: 20221104
  Transmission Date: 20230113
  Serious: Yes (Other)
  Sender: FDA-Public Use
  Company Number: GB-MHRA-MED-202211011547593860-FNMSK

PATIENT
  Age: 53 Year
  Sex: Male

DRUGS (3)
  1. RITUXIMAB [Suspect]
     Active Substance: RITUXIMAB
     Dosage: 800MG/500ML
     Dates: start: 20220930
  2. RITUXIMAB [Suspect]
     Active Substance: RITUXIMAB
     Dosage: 800MG/500ML
     Dates: start: 20221007
  3. RITUXIMAB [Suspect]
     Active Substance: RITUXIMAB
     Dosage: UNK
     Dates: start: 20221014, end: 20221014

REACTIONS (7)
  - Pyrexia [Unknown]
  - Cold sweat [Unknown]
  - Respiratory rate increased [Unknown]
  - Heart rate increased [Unknown]
  - Tremor [Recovered/Resolved]
  - Chills [Recovered/Resolved]
  - Feeling hot [Recovered/Resolved]

NARRATIVE: CASE EVENT DATE: 20220930
